FAERS Safety Report 4727390-4 (Version None)
Quarter: 2005Q3

REPORT INFORMATION
  Report Type: 
  Country: None (occurrence: None)
  Receive Date: 20050728
  Receipt Date: 20050722
  Transmission Date: 20060218
  Serious: Yes (Hospitalization)
  Sender: FDA-Public Use
  Company Number: US-MERCK-0507USA03814

PATIENT
  Age: 49 Year
  Sex: Male

DRUGS (4)
  1. VIOXX [Suspect]
     Indication: ARTHRALGIA
     Route: 048
  2. VIOXX [Suspect]
     Route: 048
  3. VIOXX [Suspect]
     Indication: SHOULDER PAIN
     Route: 048
  4. VIOXX [Suspect]
     Route: 048

REACTIONS (1)
  - CORONARY ARTERY DISEASE [None]
